FAERS Safety Report 5264207-6 (Version None)
Quarter: 2007Q1

REPORT INFORMATION
  Report Type: 
  Country: None (occurrence: None)
  Receive Date: 20070313
  Receipt Date: 20070301
  Transmission Date: 20070707
  Serious: Yes (Hospitalization, Other)
  Sender: FDA-Public Use
  Company Number: US-PFIZER INC-2007016844

PATIENT
  Sex: Female
  Weight: 59 kg

DRUGS (2)
  1. LIPITOR [Suspect]
     Indication: BLOOD CHOLESTEROL INCREASED
  2. FOSAMAX [Concomitant]

REACTIONS (3)
  - ALOPECIA [None]
  - FALL [None]
  - SKELETAL INJURY [None]
